FAERS Safety Report 13461915 (Version 1)
Quarter: 2017Q2

REPORT INFORMATION
  Report Type: Spontaneous
  Country: US (occurrence: US)
  Receive Date: 20170419
  Receipt Date: 20170419
  Transmission Date: 20170830
  Serious: Yes (Hospitalization)
  Sender: FDA-Public Use
  Company Number: None

PATIENT
  Age: 67 Year
  Sex: Male

DRUGS (2)
  1. MORPHINE [Suspect]
     Active Substance: MORPHINE
     Indication: PAIN
     Route: 048
     Dates: start: 20030801, end: 20170411
  2. OXYCODONE [Suspect]
     Active Substance: OXYCODONE
     Indication: PAIN
     Route: 048
     Dates: start: 20040420, end: 20170410

REACTIONS (8)
  - Sedation [None]
  - Overdose [None]
  - Tremor [None]
  - Somnolence [None]
  - Respiratory depression [None]
  - Anxiety [None]
  - Withdrawal syndrome [None]
  - Diarrhoea [None]

NARRATIVE: CASE EVENT DATE: 20170410
